FAERS Safety Report 10025635 (Version 1)
Quarter: 2014Q1

REPORT INFORMATION
  Report Type: Spontaneous
  Country: US (occurrence: None)
  Receive Date: 20140318
  Receipt Date: 20140318
  Transmission Date: 20141002
  Serious: Yes (Life-Threatening, Hospitalization)
  Sender: FDA-Public Use
  Company Number: 2014AP001831

PATIENT
  Age: 85 Year
  Sex: Female

DRUGS (5)
  1. SOTALOL HCL [Suspect]
  2. COTRIMOXAZOLE [Suspect]
     Indication: URINARY TRACT INFECTION
  3. VALSARTAN [Suspect]
  4. SPIRONOLACTONE [Suspect]
  5. WARFARIN [Suspect]

REACTIONS (7)
  - Hyperkalaemia [None]
  - Asthenia [None]
  - Diarrhoea [None]
  - Nodal rhythm [None]
  - Bundle branch block left [None]
  - Electrocardiogram T wave peaked [None]
  - Haemodialysis [None]
